FAERS Safety Report 8334028-6 (Version None)
Quarter: 2012Q2

REPORT INFORMATION
  Report Type: 
  Country: None (occurrence: None)
  Receive Date: 20120503
  Receipt Date: 20120426
  Transmission Date: 20120825
  Serious: Yes (Disabling, Other)
  Sender: FDA-Public Use
  Company Number: US-ABBOTT-12P-163-0927232-00

PATIENT
  Age: 63 Year
  Sex: Male

DRUGS (6)
  1. COUMADIN [Concomitant]
     Indication: PRODUCT USED FOR UNKNOWN INDICATION
     Dosage: ON MON, TUES, FRI, SAT AND SUN
  2. PROBIOTIC [Concomitant]
     Indication: PRODUCT USED FOR UNKNOWN INDICATION
  3. HUMIRA [Suspect]
     Indication: CROHN'S DISEASE
     Dates: start: 20120327
  4. COUMADIN [Concomitant]
     Dosage: ON WEDNESDAY
  5. UNKNOWN MEDICATION [Concomitant]
     Indication: BLOOD PRESSURE
  6. METAMUCIL-2 [Concomitant]
     Indication: PRODUCT USED FOR UNKNOWN INDICATION

REACTIONS (2)
  - OPTIC NEURITIS [None]
  - VISUAL FIELD DEFECT [None]
